FAERS Safety Report 5346619-5 (Version None)
Quarter: 2007Q2

REPORT INFORMATION
  Report Type: 
  Country: None (occurrence: None)
  Receive Date: 20070605
  Receipt Date: 20070524
  Transmission Date: 20071010
  Serious: Yes (Death)
  Sender: FDA-Public Use
  Company Number: JP-PFIZER INC-2007018095

PATIENT
  Age: 61 Year
  Sex: Female
  Weight: 53.4 kg

DRUGS (2)
  1. VFEND [Suspect]
     Indication: FUNGAL INFECTION
     Route: 042
     Dates: start: 20070226, end: 20070226
  2. VFEND [Suspect]
     Route: 042

REACTIONS (2)
  - ACUTE MYELOID LEUKAEMIA [None]
  - GAMMA-GLUTAMYLTRANSFERASE ABNORMAL [None]
